FAERS Safety Report 9209816 (Version 1)
Quarter: 2013Q1

REPORT INFORMATION
  Report Type: Spontaneous
  Country: US (occurrence: None)
  Receive Date: 20120820
  Receipt Date: 20120820
  Transmission Date: 20140127
  Serious: No
  Sender: FDA-Public Use
  Company Number: 1000037117

PATIENT
  Age: 48 Year
  Sex: Female

DRUGS (7)
  1. VIIBRYD (VILAZODONE) (TABLETS) [Suspect]
     Indication: DEPRESSION
     Route: 048
     Dates: start: 201205
  2. VIIBRYD (VILAZODONE) (TABLETS) [Suspect]
     Indication: ANXIETY
     Route: 048
     Dates: start: 201205
  3. METHADONE (METHADONE) (METHADONE) [Concomitant]
  4. FOLIC ACID (FOLIC ACID) (FOLIC ACID) [Concomitant]
  5. METHOTREXATE (METHOTRERXATE) (METHOTREXATE) [Concomitant]
  6. PREDNISONE (PREDNISONE) (PREDNISONE) [Concomitant]
  7. PLAQUENIL (HYDROCHLOROQUINE) (HYDROCHLOROQUINE) [Concomitant]

REACTIONS (2)
  - Nausea [None]
  - Dyspepsia [None]
